FAERS Safety Report 10420525 (Version 1)
Quarter: 2014Q2

REPORT INFORMATION
  Report Type: Spontaneous
  Country: US (occurrence: None)
  Receive Date: 20140618
  Receipt Date: 20140618
  Transmission Date: 20141212
  Serious: Yes (Hospitalization)
  Sender: FDA-Public Use
  Company Number: 099332

PATIENT
  Sex: Female
  Weight: 91.8 kg

DRUGS (2)
  1. LACOSAMIDE [Suspect]
     Indication: CONVULSION
     Dates: start: 201208
  2. PHENYTOIN SODIUM [Concomitant]

REACTIONS (12)
  - Convulsion [None]
  - Tremor [None]
  - Dizziness [None]
  - Nervousness [None]
  - Diarrhoea [None]
  - Muscular weakness [None]
  - Memory impairment [None]
  - Abdominal pain upper [None]
  - Balance disorder [None]
  - Somnolence [None]
  - Hypokinesia [None]
  - Musculoskeletal disorder [None]
